FAERS Safety Report 17474947 (Version 1)
Quarter: 2020Q1

REPORT INFORMATION
  Report Type: Spontaneous
  Country: IN (occurrence: IN)
  Receive Date: 20200228
  Receipt Date: 20200228
  Transmission Date: 20200409
  Serious: Yes (Other)
  Sender: FDA-Public Use
  Company Number: IN-PFIZER INC-2020090332

PATIENT
  Age: 77 Year
  Sex: Female

DRUGS (1)
  1. PALBACE [Suspect]
     Active Substance: PALBOCICLIB
     Indication: BREAST CANCER METASTATIC
     Dosage: 75 MG, UNK
     Route: 048
     Dates: start: 20200222

REACTIONS (1)
  - Loss of consciousness [Not Recovered/Not Resolved]
